FAERS Safety Report 5502304-8 (Version None)
Quarter: 2007Q4

REPORT INFORMATION
  Report Type: 
  Country: None (occurrence: None)
  Receive Date: 20071030
  Receipt Date: 20071019
  Transmission Date: 20080405
  Serious: Yes (Hospitalization)
  Sender: FDA-Public Use
  Company Number: NO-JNJFOC-20071006001

PATIENT
  Sex: Male

DRUGS (8)
  1. REMICADE [Suspect]
     Indication: PSORIATIC ARTHROPATHY
     Route: 042
  2. HUMIRA [Suspect]
     Indication: PSORIATIC ARTHROPATHY
     Route: 058
  3. ENBREL [Suspect]
  4. ENBREL [Suspect]
     Indication: PSORIATIC ARTHROPATHY
  5. RITUXAN [Suspect]
     Indication: PSORIATIC ARTHROPATHY
     Route: 042
  6. PREDNISOLON [Concomitant]
  7. METHOTREXATE [Concomitant]
  8. RITUXIMAB [Concomitant]

REACTIONS (1)
  - SQUAMOUS CELL CARCINOMA [None]
